FAERS Safety Report 17559293 (Version 1)
Quarter: 2020Q1

REPORT INFORMATION
  Report Type: Spontaneous
  Country: US (occurrence: US)
  Receive Date: 20200319
  Receipt Date: 20200319
  Transmission Date: 20200409
  Serious: No
  Sender: FDA-Public Use
  Company Number: US-GLENMARK PHARMACEUTICALS-2020GMK045465

PATIENT

DRUGS (2)
  1. MOMETASONE FUROATE OINTMENT USP, 0.1% [Suspect]
     Active Substance: MOMETASONE FUROATE
     Indication: ORAL HERPES
     Dosage: UNK
     Route: 065
     Dates: start: 20200116
  2. MUPIROCIN. [Suspect]
     Active Substance: MUPIROCIN
     Indication: ORAL HERPES
     Dosage: UNK
     Route: 065
     Dates: start: 20200116

REACTIONS (2)
  - Wrong technique in product usage process [Unknown]
  - Product use in unapproved indication [Unknown]

NARRATIVE: CASE EVENT DATE: 20200116
